FAERS Safety Report 24927875 (Version 1)
Quarter: 2025Q1

REPORT INFORMATION
  Report Type: Spontaneous
  Country: IN (occurrence: IN)
  Receive Date: 20250205
  Receipt Date: 20250205
  Transmission Date: 20250409
  Serious: Yes (Hospitalization)
  Sender: MYLAN
  Company Number: IN-MYLANLABS-2025M1009217

PATIENT
  Age: 4 Decade
  Sex: Female
  Weight: 40 kg

DRUGS (6)
  1. PHENYTOIN [Interacting]
     Active Substance: PHENYTOIN
     Indication: Seizure
     Dosage: 100 MILLIGRAM, TID, RECEIVED THREE TIMES A DAY
     Route: 065
  2. ISONIAZID [Interacting]
     Active Substance: ISONIAZID
     Indication: Pulmonary tuberculosis
     Route: 065
  3. ISONIAZID [Interacting]
     Active Substance: ISONIAZID
     Route: 065
  4. RIFAMPIN [Concomitant]
     Active Substance: RIFAMPIN
     Indication: Pulmonary tuberculosis
     Dosage: 600 MILLIGRAM, QD, AS A PART OF ANTITUBERCULAR REGIMEN
     Route: 065
  5. PYRAZINAMIDE [Concomitant]
     Active Substance: PYRAZINAMIDE
     Indication: Pulmonary tuberculosis
     Dosage: 1200 MILLIGRAM, QD, AS A PART OF ANTITUBERCULAR REGIMEN
     Route: 065
  6. ETHAMBUTOL [Concomitant]
     Active Substance: ETHAMBUTOL HYDROCHLORIDE
     Indication: Pulmonary tuberculosis
     Dosage: 800 MILLIGRAM, QD, AS A PART OF ANTITUBERCULAR REGIMEN
     Route: 065

REACTIONS (7)
  - Balance disorder [Recovered/Resolved]
  - Hyperreflexia [Recovered/Resolved]
  - Stupor [Recovered/Resolved]
  - Toxicity to various agents [Recovered/Resolved]
  - Psychotic disorder [Recovered/Resolved]
  - Nystagmus [Recovered/Resolved]
  - Labelled drug-drug interaction medication error [Recovered/Resolved]
